FAERS Safety Report 6736995-0 (Version None)
Quarter: 2010Q2

REPORT INFORMATION
  Report Type: 
  Country: None (occurrence: None)
  Receive Date: 20100523
  Receipt Date: 20100217
  Transmission Date: 20101027
  Serious: No
  Sender: FDA-Public Use
  Company Number: US-ALLERGAN-1001659US

PATIENT
  Age: 62 Year
  Sex: Female

DRUGS (3)
  1. COMBIGAN [Suspect]
     Indication: INTRAOCULAR PRESSURE INCREASED
     Dosage: 1 GTT, BID
     Route: 047
     Dates: start: 20100206, end: 20100208
  2. ENALAPRIL MALEATE [Concomitant]
     Indication: HYPERTENSION
  3. METOPROLOL TARTRATE [Concomitant]
     Indication: HYPERTENSION

REACTIONS (2)
  - DIZZINESS [None]
  - HYPERTENSION [None]
